FAERS Safety Report 7374523-X (Version None)
Quarter: 2011Q1

REPORT INFORMATION
  Report Type: 
  Country: None (occurrence: None)
  Receive Date: 20110325
  Receipt Date: 20100207
  Transmission Date: 20110831
  Serious: No
  Sender: FDA-Public Use
  Company Number: US-MYLANLABS-2010S1002224

PATIENT
  Age: 82 Year
  Sex: Male
  Weight: 86.18 kg

DRUGS (5)
  1. ARICEPT [Concomitant]
     Dates: start: 20050101
  2. ENALAPRIL MALEATE [Concomitant]
  3. FENTANYL-100 [Suspect]
     Indication: BACK PAIN
     Dosage: Q72H
     Route: 062
     Dates: start: 20100201
  4. VESICARE [Concomitant]
  5. SYNTHROID [Concomitant]

REACTIONS (4)
  - HYPERSOMNIA [None]
  - DIZZINESS [None]
  - HYPERHIDROSIS [None]
  - CONSTIPATION [None]
